FAERS Safety Report 4647899-1 (Version None)
Quarter: 2005Q2

REPORT INFORMATION
  Report Type: 
  Country: None (occurrence: None)
  Receive Date: 20050427
  Receipt Date: 20050427
  Transmission Date: 20051028
  Serious: No
  Sender: FDA-Public Use
  Company Number: None

PATIENT
  Sex: Female
  Weight: 50 kg

DRUGS (6)
  1. FLUOROURACIL [Suspect]
     Dates: start: 20050214
  2. CISPLATIN [Suspect]
     Indication: ANAL CANCER
     Dosage: 107 MG
     Dates: start: 20050411, end: 20050411
  3. RADIOTHERAPY [Suspect]
  4. CLONAZEPAM [Concomitant]
  5. CORGARD [Concomitant]
  6. HYDROCHLOROTHIAZIDE [Concomitant]

REACTIONS (2)
  - ASTHENIA [None]
  - DECREASED APPETITE [None]
